FAERS Safety Report 15622816 (Version 1)
Quarter: 2018Q4

REPORT INFORMATION
  Report Type: Spontaneous
  Country: US (occurrence: US)
  Receive Date: 20181115
  Receipt Date: 20181115
  Transmission Date: 20190205
  Serious: Yes (Other)
  Sender: FDA-Public Use
  Company Number: US-MYLANLABS-2018M1085790

PATIENT
  Age: 31 Year
  Sex: Male

DRUGS (5)
  1. PREDNISONE. [Suspect]
     Active Substance: PREDNISONE
     Indication: RETINAL TOXICITY
     Route: 048
  2. BRINZOLAMIDE [Suspect]
     Active Substance: BRINZOLAMIDE
     Indication: RETINAL TOXICITY
     Dosage: ADMINISTERED THREE TIMES A DAY IN BOTH EYES
     Route: 061
  3. SILDENAFIL. [Suspect]
     Active Substance: SILDENAFIL
     Indication: PRODUCT USED FOR UNKNOWN INDICATION
     Dosage: INGESTED MUCH MORE THAN 50MG/ML
     Route: 048
  4. BRIMONIDINE TARTRATE. [Suspect]
     Active Substance: BRIMONIDINE TARTRATE
     Indication: RETINAL TOXICITY
     Dosage: ADMINISTERED TWO TIMES A DAY IN BOTH EYES
     Route: 061
  5. PREDNISOLONE. [Suspect]
     Active Substance: PREDNISOLONE
     Indication: RETINAL TOXICITY
     Dosage: ADMINISTERED FOUR TIMES A DAY IN BOTH EYES
     Route: 061

REACTIONS (4)
  - Retinal toxicity [Not Recovered/Not Resolved]
  - Drug ineffective [Unknown]
  - Wrong technique in product usage process [Unknown]
  - Overdose [Unknown]
